FAERS Safety Report 13769558 (Version 1)
Quarter: 2017Q3

REPORT INFORMATION
  Report Type: Spontaneous
  Country: ES (occurrence: ES)
  Receive Date: 20170719
  Receipt Date: 20170719
  Transmission Date: 20171127
  Serious: Yes (Death, Life-Threatening)
  Sender: FDA-Public Use
  Company Number: ES-JNJFOC-20170713129

PATIENT
  Age: 87 Year
  Sex: Female

DRUGS (7)
  1. QUETIAPINE. [Suspect]
     Active Substance: QUETIAPINE
     Indication: DEMENTIA OF THE ALZHEIMER^S TYPE, WITH DELUSIONS
     Dosage: DOSE: 0-0-1
     Route: 048
     Dates: start: 20140429, end: 20141008
  2. NOCTAMID [Concomitant]
     Active Substance: LORMETAZEPAM
     Indication: INSOMNIA
     Dosage: DOSE: 0-0-1
     Route: 048
     Dates: start: 20030127
  3. MARIXINO [Concomitant]
     Indication: DEMENTIA OF THE ALZHEIMER^S TYPE, WITH DELIRIUM
     Dosage: DOSE: 1-0-0
     Route: 048
     Dates: start: 20140310
  4. ALPRAZOLAM. [Concomitant]
     Active Substance: ALPRAZOLAM
     Indication: DEPRESSION
     Route: 048
     Dates: start: 20060904
  5. DACORTIN [Concomitant]
     Active Substance: PREDNISONE
     Indication: POLYMYALGIA RHEUMATICA
     Dosage: DOSE: 1-0-0
     Route: 048
     Dates: start: 20120521
  6. ESCITALOPRAM [Concomitant]
     Active Substance: ESCITALOPRAM OXALATE
     Indication: AGITATED DEPRESSION
     Dosage: DOSE: 1-0-0
     Route: 048
     Dates: start: 20111014
  7. RISPERDAL [Suspect]
     Active Substance: RISPERIDONE
     Indication: DEMENTIA OF THE ALZHEIMER^S TYPE, WITH DELUSIONS
     Dosage: DOSE: 0.5-0-1.5 MG (STRENGTH: 1 MG/ML)
     Route: 048
     Dates: start: 20140310

REACTIONS (2)
  - Death [Fatal]
  - Lacunar stroke [Recovered/Resolved]

NARRATIVE: CASE EVENT DATE: 20141016
